FAERS Safety Report 13135899 (Version 3)
Quarter: 2017Q1

REPORT INFORMATION
  Report Type: Spontaneous
  Country: US (occurrence: US)
  Receive Date: 20170120
  Receipt Date: 20170310
  Transmission Date: 20170428
  Serious: Yes (Life-Threatening, Hospitalization, Other)
  Sender: FDA-Public Use
  Company Number: US-SUNOVION-2017SUN000188

PATIENT
  Age: 40 Year
  Sex: Female
  Weight: 74.83 kg

DRUGS (4)
  1. LATUDA [Suspect]
     Active Substance: LURASIDONE HYDROCHLORIDE
     Dosage: 40 MG, UNK
     Route: 048
     Dates: start: 20160314
  2. LATUDA [Suspect]
     Active Substance: LURASIDONE HYDROCHLORIDE
     Dosage: 60 MG, UNK
     Route: 048
     Dates: start: 20160428
  3. LATUDA [Suspect]
     Active Substance: LURASIDONE HYDROCHLORIDE
     Dosage: 80 MG, UNK
     Route: 048
     Dates: start: 20161126
  4. INSULIN [Concomitant]
     Active Substance: INSULIN NOS

REACTIONS (21)
  - Diabetic ketoacidosis [Unknown]
  - Hyperglycaemia [Unknown]
  - Gait disturbance [Unknown]
  - Confusional state [Unknown]
  - Feeling abnormal [Unknown]
  - Renal disorder [Unknown]
  - Stress [Not Recovered/Not Resolved]
  - Frustration tolerance decreased [Unknown]
  - Furuncle [Recovered/Resolved]
  - Aphonia [Unknown]
  - Glassy eyes [Unknown]
  - Peripheral coldness [Unknown]
  - Pain [Unknown]
  - Emotional distress [Unknown]
  - Musculoskeletal stiffness [Unknown]
  - Ammonia increased [Unknown]
  - Acute kidney injury [Unknown]
  - Pollakiuria [Unknown]
  - Blood glucose increased [Unknown]
  - Weight decreased [Unknown]
  - Fluid retention [Unknown]

NARRATIVE: CASE EVENT DATE: 2016
